FAERS Safety Report 18037900 (Version 1)
Quarter: 2020Q3

REPORT INFORMATION
  Report Type: Spontaneous
  Country: US (occurrence: US)
  Receive Date: 20200717
  Receipt Date: 20200717
  Transmission Date: 20201103
  Serious: Yes (Other)
  Sender: FDA-Public Use
  Company Number: US-COVIS PHARMA B.V.-2020COV00284

PATIENT
  Sex: Female

DRUGS (28)
  1. BUDESONIDE. [Suspect]
     Active Substance: BUDESONIDE
     Route: 055
  2. MESALAMINE. [Concomitant]
     Active Substance: MESALAMINE
  3. MORPHINE [Concomitant]
     Active Substance: MORPHINE
  4. PYRIDOXIN [Concomitant]
     Active Substance: PYRIDOXINE
  5. PRILOSEC [Concomitant]
     Active Substance: OMEPRAZOLE MAGNESIUM
  6. FOLIC ACID. [Concomitant]
     Active Substance: FOLIC ACID
  7. METFORMIN [Concomitant]
     Active Substance: METFORMIN HYDROCHLORIDE
  8. CALCIUM CARBONATE+MAGNESIUM [Concomitant]
  9. PREGABALIN. [Concomitant]
     Active Substance: PREGABALIN
  10. ELAVIL [Concomitant]
     Active Substance: AMITRIPTYLINE HYDROCHLORIDE
  11. LOMOTIL [Concomitant]
     Active Substance: ATROPINE SULFATE\DIPHENOXYLATE HYDROCHLORIDE
  12. FUROSEMIDE. [Concomitant]
     Active Substance: FUROSEMIDE
  13. UNIDENTIFIED PRODUCT ^RNETFORRNIN^ [Concomitant]
  14. KLOR?CON [Concomitant]
     Active Substance: POTASSIUM CHLORIDE
  15. SPIRONOLACTONE. [Concomitant]
     Active Substance: SPIRONOLACTONE
  16. IMODIUM A?D [Concomitant]
     Active Substance: LOPERAMIDE HYDROCHLORIDE
  17. OMEPRAZOLE MAGNESIUM. [Suspect]
     Active Substance: OMEPRAZOLE MAGNESIUM
     Route: 048
  18. LISINOPRIL. [Suspect]
     Active Substance: LISINOPRIL
     Route: 048
  19. METOPROLOL TARTRATE. [Suspect]
     Active Substance: METOPROLOL TARTRATE
  20. ALBUTEROL. [Concomitant]
     Active Substance: ALBUTEROL
  21. HYDROXYCHLOROQUINE [Concomitant]
     Active Substance: HYDROXYCHLOROQUINE
  22. CLOBETASOL [Concomitant]
     Active Substance: CLOBETASOL
  23. VITAMIN B12 [Concomitant]
     Active Substance: CYANOCOBALAMIN
  24. EPIPEN [Concomitant]
     Active Substance: EPINEPHRINE
  25. DULERA [Concomitant]
     Active Substance: FORMOTEROL FUMARATE DIHYDRATE\MOMETASONE FUROATE
  26. PYRIDOXINE HYDROCHLORIDE. [Concomitant]
     Active Substance: PYRIDOXINE HYDROCHLORIDE
  27. ATROVENT [Concomitant]
     Active Substance: IPRATROPIUM BROMIDE
  28. SINGULAIR [Concomitant]
     Active Substance: MONTELUKAST SODIUM

REACTIONS (21)
  - Swelling [Unknown]
  - Vitamin D deficiency [Unknown]
  - Hydrosalpinx [Unknown]
  - Neuropathy peripheral [Unknown]
  - Constipation [Unknown]
  - Hiatus hernia [Unknown]
  - Fibromyalgia [Unknown]
  - Hypertonic bladder [Unknown]
  - Coronary artery disease [Unknown]
  - Cardiac failure congestive [Unknown]
  - Ovarian cyst [Unknown]
  - Diabetes mellitus [Unknown]
  - Hypoglycaemia [Unknown]
  - Osteoarthritis [Unknown]
  - Pain [Unknown]
  - Back pain [Unknown]
  - Crohn^s disease [Unknown]
  - Hypersensitivity [Unknown]
  - Rhinitis [Unknown]
  - Inguinal hernia [Unknown]
  - Arthralgia [Unknown]
